FAERS Safety Report 19239006 (Version 1)
Quarter: 2021Q2

REPORT INFORMATION
  Report Type: Spontaneous
  Country: US (occurrence: US)
  Receive Date: 20210510
  Receipt Date: 20210510
  Transmission Date: 20210717
  Serious: Yes (Hospitalization)
  Sender: FDA-Public Use
  Company Number: US-GW PHARMA-202104USGW02149

PATIENT

DRUGS (6)
  1. CLONAZEPAM. [Concomitant]
     Active Substance: CLONAZEPAM
     Indication: STATUS EPILEPTICUS
     Dosage: AS NEEDED
     Route: 048
  2. DIAZEPAM. [Concomitant]
     Active Substance: DIAZEPAM
     Indication: STATUS EPILEPTICUS
     Dosage: AS NEEDED
     Route: 054
  3. PRIMIDONE. [Concomitant]
     Active Substance: PRIMIDONE
     Indication: STATUS EPILEPTICUS
     Dosage: 250 MILLIGRAM, TID
     Route: 065
  4. LACOSAMIDE. [Concomitant]
     Active Substance: LACOSAMIDE
     Indication: STATUS EPILEPTICUS
     Dosage: 200 MILLIGRAM, BID
     Route: 065
  5. PHENYTOIN. [Concomitant]
     Active Substance: PHENYTOIN
     Indication: STATUS EPILEPTICUS
     Dosage: 200 MILLIGRAM, QD
     Route: 065
  6. EPIDIOLEX [Suspect]
     Active Substance: CANNABIDIOL
     Indication: STATUS EPILEPTICUS
     Dosage: 120 MILLIGRAM, BID
     Route: 065

REACTIONS (8)
  - Pneumonia [Unknown]
  - Sepsis [Unknown]
  - Pyrexia [Unknown]
  - Drug ineffective [Unknown]
  - Product use in unapproved indication [Unknown]
  - Seizure [Recovering/Resolving]
  - Hospitalisation [Unknown]
  - Hypotension [Recovering/Resolving]
